FAERS Safety Report 19040639 (Version 1)
Quarter: 2021Q1

REPORT INFORMATION
  Report Type: Spontaneous
  Country: US (occurrence: US)
  Receive Date: 20210323
  Receipt Date: 20210323
  Transmission Date: 20210420
  Serious: Yes (Other)
  Sender: FDA-Public Use
  Company Number: US-UNITED THERAPEUTICS-UNT-2021-004369

PATIENT
  Sex: Female
  Weight: 50.34 kg

DRUGS (3)
  1. REMODULIN [Suspect]
     Active Substance: TREPROSTINIL
     Dosage: 0.034 ?G/KG, CONTINUING
     Route: 058
  2. REMODULIN [Suspect]
     Active Substance: TREPROSTINIL
     Indication: PULMONARY ARTERIAL HYPERTENSION
     Dosage: UNK, CONTINUING
     Route: 058
     Dates: start: 20190503
  3. REMODULIN [Suspect]
     Active Substance: TREPROSTINIL
     Dosage: 0.0364 ?G/KG, CONTINUING
     Route: 058

REACTIONS (2)
  - Cerebrovascular accident [Unknown]
  - Device use issue [Unknown]
